FAERS Safety Report 17172870 (Version 3)
Quarter: 2020Q4

REPORT INFORMATION
  Report Type: Spontaneous
  Country: US (occurrence: US)
  Receive Date: 20191219
  Receipt Date: 20201207
  Transmission Date: 20210113
  Serious: No
  Sender: FDA-Public Use
  Company Number: US-SA-2019SA351982

PATIENT

DRUGS (1)
  1. DUPIXENT [Suspect]
     Active Substance: DUPILUMAB
     Indication: ECZEMA
     Dosage: 300 MG, QOW
     Route: 058
     Dates: start: 20191029

REACTIONS (3)
  - Psoriasis [Unknown]
  - Peripheral vein occlusion [Recovering/Resolving]
  - Angioplasty [Unknown]

NARRATIVE: CASE EVENT DATE: 20191214
